FAERS Safety Report 5523784-8 (Version None)
Quarter: 2007Q4

REPORT INFORMATION
  Report Type: 
  Country: None (occurrence: None)
  Receive Date: 20071121
  Receipt Date: 20071113
  Transmission Date: 20080405
  Serious: Yes (Hospitalization, Other)
  Sender: FDA-Public Use
  Company Number: GB-JNJFOC-20071104962

PATIENT
  Sex: Female
  Weight: 96 kg

DRUGS (9)
  1. REMICADE [Suspect]
     Indication: RHEUMATOID ARTHRITIS
     Route: 042
  2. PREDNISOLONE [Concomitant]
  3. CALCICHEW D3 FORTE [Concomitant]
  4. CO-CODAMOL [Concomitant]
  5. EMOLLIENT CREAM [Concomitant]
  6. GAVISCON [Concomitant]
  7. INHALERS [Concomitant]
  8. TRAMADOL HCL [Concomitant]
  9. LEVOTHYROXINE SODIUM [Concomitant]

REACTIONS (1)
  - ANEURYSM [None]
